FAERS Safety Report 7283775-6 (Version None)
Quarter: 2011Q1

REPORT INFORMATION
  Report Type: 
  Country: None (occurrence: None)
  Receive Date: 20110209
  Receipt Date: 20110207
  Transmission Date: 20110831
  Serious: Yes (Hospitalization)
  Sender: FDA-Public Use
  Company Number: US-MERCK-1102USA00773

PATIENT
  Age: 56 Year
  Sex: Male

DRUGS (5)
  1. GLYBURIDE [Suspect]
     Route: 065
  2. JANUVIA [Suspect]
     Indication: TYPE 2 DIABETES MELLITUS
     Route: 048
  3. ACTOS [Suspect]
     Route: 065
  4. LANTUS [Suspect]
     Indication: TYPE 2 DIABETES MELLITUS
     Route: 058
  5. NOVOLOG [Suspect]
     Route: 065

REACTIONS (2)
  - INFECTED SKIN ULCER [None]
  - BLOOD GLUCOSE DECREASED [None]
